FAERS Safety Report 25715859 (Version 1)
Quarter: 2025Q3

REPORT INFORMATION
  Report Type: Spontaneous
  Country: US (occurrence: US)
  Receive Date: 20250822
  Receipt Date: 20250822
  Transmission Date: 20251021
  Serious: Yes (Other)
  Sender: MYLAN
  Company Number: US-MYLANLABS-2025M1070745

PATIENT
  Age: 6 Decade
  Sex: Male

DRUGS (8)
  1. ATORVASTATIN [Suspect]
     Active Substance: ATORVASTATIN
     Indication: Product used for unknown indication
  2. METHOTREXATE [Suspect]
     Active Substance: METHOTREXATE
     Indication: Dermatomyositis
     Dosage: 12.5 MILLIGRAM, QW, SYSTEMIC
  3. MYCOPHENOLATE MOFETIL [Suspect]
     Active Substance: MYCOPHENOLATE MOFETIL
     Indication: Dermatomyositis
  4. TOFACITINIB [Suspect]
     Active Substance: TOFACITINIB
     Indication: Dermatomyositis
  5. ANIFROLUMAB [Concomitant]
     Active Substance: ANIFROLUMAB
     Indication: Dermatomyositis
  6. ANIFROLUMAB [Concomitant]
     Active Substance: ANIFROLUMAB
  7. Immunoglobulin [Concomitant]
     Indication: Dermatomyositis
  8. PREDNISONE [Concomitant]
     Active Substance: PREDNISONE
     Indication: Dermatomyositis
     Dosage: 5 MILLIGRAM, QD

REACTIONS (4)
  - Blood creatine phosphokinase increased [Recovering/Resolving]
  - Hypertransaminasaemia [Unknown]
  - Treatment failure [Unknown]
  - Off label use [Unknown]
